FAERS Safety Report 13617221 (Version 2)
Quarter: 2018Q2

REPORT INFORMATION
  Report Type: Spontaneous
  Country: US (occurrence: US)
  Receive Date: 20170606
  Receipt Date: 20180517
  Transmission Date: 20180711
  Serious: No
  Sender: FDA-Public Use
  Company Number: US-SA-2017SA069965

PATIENT
  Age: 71 Year
  Sex: Female

DRUGS (2)
  1. LANTUS SOLOSTAR [Suspect]
     Active Substance: INSULIN GLARGINE
     Indication: TYPE 2 DIABETES MELLITUS
     Dosage: DOSE:20 UNIT(S)
     Route: 065
     Dates: start: 20170320, end: 20170404
  2. SOLOSTAR [Concomitant]
     Active Substance: DEVICE
     Indication: TYPE 2 DIABETES MELLITUS
     Dates: start: 20170320, end: 20170404

REACTIONS (3)
  - Gait disturbance [Recovering/Resolving]
  - Injection site pain [Recovering/Resolving]
  - Back pain [Recovering/Resolving]
